FAERS Safety Report 6146265-X (Version None)
Quarter: 2009Q2

REPORT INFORMATION
  Report Type: 
  Country: None (occurrence: None)
  Receive Date: 20090407
  Receipt Date: 20090325
  Transmission Date: 20091009
  Serious: Yes (Other)
  Sender: FDA-Public Use
  Company Number: FR-ELI_LILLY_AND_COMPANY-FR200712001189

PATIENT
  Age: 62 Year
  Sex: Male

DRUGS (9)
  1. ZYPREXA [Suspect]
     Indication: SCHIZOPHRENIA
     Dosage: 10 MG, DAILY (1/D)
     Route: 048
     Dates: start: 20000101, end: 20050101
  2. ZYPREXA [Suspect]
     Dosage: 5 MG, DAILY (1/D)
     Route: 048
     Dates: start: 20070101, end: 20080301
  3. ZYPREXA [Suspect]
     Dosage: 2.5 MG, DAILY (1/D)
     Route: 048
     Dates: start: 20080301
  4. RISPERIDONE [Concomitant]
     Indication: SCHIZOPHRENIA
     Dosage: 8 MG, DAILY (1/D)
     Route: 048
     Dates: start: 20050101, end: 20060101
  5. DEPAKOTE [Concomitant]
     Indication: SCHIZOPHRENIA
     Dosage: 500 MG, DAILY (1/D)
     Route: 048
     Dates: start: 20050101, end: 20060101
  6. SEROPLEX [Concomitant]
     Indication: SCHIZOPHRENIA
     Dosage: 20 MG, DAILY (1/D)
     Route: 048
     Dates: start: 20050101, end: 20060101
  7. NORSET [Concomitant]
     Indication: SCHIZOPHRENIA
     Dosage: 30 MG, DAILY (1/D)
     Route: 048
     Dates: start: 20050101
  8. NORSET [Concomitant]
     Dosage: 15 MG, DAILY (1/D)
     Route: 048
  9. MAG 2 [Concomitant]
     Indication: SCHIZOPHRENIA
     Dosage: UNK, UNKNOWN
     Route: 048

REACTIONS (13)
  - ASTHENIA [None]
  - DEPRESSED LEVEL OF CONSCIOUSNESS [None]
  - DEPRESSION [None]
  - DIABETES MELLITUS [None]
  - DRY EYE [None]
  - DRY MOUTH [None]
  - HYPERTENSION [None]
  - NARCOLEPSY [None]
  - POLYDIPSIA [None]
  - POLYURIA [None]
  - RENAL FAILURE [None]
  - SOMNOLENCE [None]
  - SUICIDAL IDEATION [None]
